FAERS Safety Report 9436301 (Version 2)
Quarter: 2013Q4

REPORT INFORMATION
  Report Type: Spontaneous
  Country: US (occurrence: US)
  Receive Date: 20130802
  Receipt Date: 20131008
  Transmission Date: 20140711
  Serious: Yes (Hospitalization)
  Sender: FDA-Public Use
  Company Number: US-BIOGENIDEC-2013BI068917

PATIENT
  Sex: Male

DRUGS (2)
  1. AVONEX [Suspect]
     Indication: MULTIPLE SCLEROSIS
     Route: 030
     Dates: start: 20120712, end: 20120801
  2. AVONEX [Suspect]
     Indication: MULTIPLE SCLEROSIS
     Route: 030
     Dates: start: 20120802, end: 20130930

REACTIONS (11)
  - Heart rate decreased [Unknown]
  - Hypoaesthesia [Unknown]
  - Speech disorder [Unknown]
  - Fear [Unknown]
  - Mobility decreased [Unknown]
  - Dehydration [Unknown]
  - Asthenia [Unknown]
  - Muscular weakness [Unknown]
  - Muscle spasms [Unknown]
  - Angina pectoris [Unknown]
  - Dizziness [Unknown]
